FAERS Safety Report 6344912-0 (Version None)
Quarter: 2009Q3

REPORT INFORMATION
  Report Type: 
  Country: None (occurrence: None)
  Receive Date: 20090909
  Receipt Date: 20090826
  Transmission Date: 20100115
  Serious: Yes (Other)
  Sender: FDA-Public Use
  Company Number: GB-RANBAXY-2009RR-26948

PATIENT
  Age: 54 Year
  Sex: Female

DRUGS (2)
  1. RAMIPRIL [Suspect]
  2. BENDROFLUMETHIAZIDE [Concomitant]

REACTIONS (5)
  - CUTANEOUS LUPUS ERYTHEMATOSUS [None]
  - DRUG ERUPTION [None]
  - GRANULOMA [None]
  - LICHENOID KERATOSIS [None]
  - STOMATITIS [None]
